FAERS Safety Report 6142906-1 (Version None)
Quarter: 2009Q2

REPORT INFORMATION
  Report Type: 
  Country: None (occurrence: None)
  Receive Date: 20090403
  Receipt Date: 20090324
  Transmission Date: 20091009
  Serious: Yes (Hospitalization)
  Sender: FDA-Public Use
  Company Number: FR-WYE-H08749509

PATIENT
  Sex: Male

DRUGS (7)
  1. INIPOMP [Suspect]
     Indication: ABDOMINAL PAIN UPPER
     Route: 042
     Dates: start: 20090219, end: 20090224
  2. IVERMECTIN [Concomitant]
     Dosage: 18 MG (6 TABLETS ONCE)
     Route: 048
     Dates: start: 20090218, end: 20090218
  3. ZOLPIDEM [Suspect]
     Dosage: 10 MG
     Route: 048
     Dates: start: 20090204, end: 20090224
  4. CORTANCYL [Concomitant]
     Indication: HENOCH-SCHONLEIN PURPURA
     Dosage: 1 MG/KG DAILY
     Route: 048
     Dates: start: 20090213
  5. MOPRAL [Suspect]
     Dosage: 20 MG
     Route: 048
     Dates: start: 20090204, end: 20090218
  6. AMLODIPINE BESYLATE [Suspect]
     Dosage: 5 MG
     Route: 048
     Dates: start: 20090216, end: 20090201
  7. AMLODIPINE BESYLATE [Suspect]
     Dosage: 10 MG
     Route: 048
     Dates: start: 20090201, end: 20090225

REACTIONS (3)
  - BLOOD CREATINE PHOSPHOKINASE INCREASED [None]
  - C-REACTIVE PROTEIN INCREASED [None]
  - HEPATOCELLULAR INJURY [None]
